FAERS Safety Report 5160621-8 (Version None)
Quarter: 2006Q4

REPORT INFORMATION
  Report Type: 
  Country: None (occurrence: None)
  Receive Date: 20061121
  Receipt Date: 20061107
  Transmission Date: 20070319
  Serious: Yes (Hospitalization, Other)
  Sender: FDA-Public Use
  Company Number: 2005104923

PATIENT
  Age: 36 Year
  Sex: Female
  Weight: 61.2356 kg

DRUGS (1)
  1. BEXTRA [Suspect]
     Indication: DYSMENORRHOEA
     Dosage: 20 MG (20 MG, 1 IN 1 D)
     Dates: start: 20030328

REACTIONS (8)
  - ALLERGY TO CHEMICALS [None]
  - ANAPHYLACTIC REACTION [None]
  - ANXIETY [None]
  - CEREBROVASCULAR ACCIDENT [None]
  - DEPRESSION [None]
  - DRUG HYPERSENSITIVITY [None]
  - MIGRAINE [None]
  - PANIC ATTACK [None]
